FAERS Safety Report 7434161-7 (Version None)
Quarter: 2011Q2

REPORT INFORMATION
  Report Type: 
  Country: None (occurrence: None)
  Receive Date: 20110425
  Receipt Date: 20110418
  Transmission Date: 20111010
  Serious: No
  Sender: FDA-Public Use
  Company Number: US-PFIZER INC-2011084647

PATIENT
  Age: 70 Year
  Sex: Male
  Weight: 74.8 kg

DRUGS (3)
  1. LIPITOR [Suspect]
     Dosage: 20 MG, UNK
     Route: 048
  2. LIPITOR [Suspect]
     Dosage: 40 MG, UNK
     Route: 048
     Dates: end: 20110301
  3. LIPITOR [Suspect]
     Indication: BLOOD CHOLESTEROL INCREASED
     Dosage: 10 MG, UNK
     Route: 048

REACTIONS (1)
  - MYALGIA [None]
